FAERS Safety Report 22208150 (Version 1)
Quarter: 2023Q2

REPORT INFORMATION
  Report Type: Spontaneous
  Country: DE (occurrence: DE)
  Receive Date: 20230413
  Receipt Date: 20230413
  Transmission Date: 20230722
  Serious: Yes (Other)
  Sender: FDA-Public Use
  Company Number: DE-BRISTOL-MYERS SQUIBB COMPANY-2023-050202

PATIENT
  Age: 54 Year
  Sex: Male

DRUGS (3)
  1. OPDIVO [Suspect]
     Active Substance: NIVOLUMAB
     Indication: Renal cell carcinoma
     Dosage: FREQUENCY: 4 TIMES GIVEN WITHIN 3 MONTHS
     Dates: start: 202012, end: 202102
  2. YERVOY [Suspect]
     Active Substance: IPILIMUMAB
     Indication: Renal cell carcinoma
     Dosage: FREQUENCY: 4 TIMES GIVEN WITHIN 3 MONTHS
     Dates: start: 202012, end: 202102
  3. COVID-19 VACCINE [Concomitant]
     Indication: COVID-19 immunisation

REACTIONS (5)
  - Enterocolitis haemorrhagic [Unknown]
  - Condition aggravated [Unknown]
  - Diabetes mellitus [Unknown]
  - Obstructive sleep apnoea syndrome [Unknown]
  - Cachexia [Unknown]

NARRATIVE: CASE EVENT DATE: 20210201
